FAERS Safety Report 6174778-3 (Version None)
Quarter: 2009Q2

REPORT INFORMATION
  Report Type: 
  Country: None (occurrence: None)
  Receive Date: 20090430
  Receipt Date: 20080922
  Transmission Date: 20091009
  Serious: No
  Sender: FDA-Public Use
  Company Number: US-ASTRAZENECA-2008UW19846

PATIENT
  Age: 54 Year
  Sex: Female

DRUGS (4)
  1. NEXIUM [Suspect]
     Indication: BARRETT'S OESOPHAGUS
     Route: 048
  2. NEXIUM [Interacting]
     Route: 048
     Dates: start: 20080920
  3. LAXATIVE [Interacting]
  4. CARAFATE [Concomitant]

REACTIONS (3)
  - DRUG INTERACTION [None]
  - ERUCTATION [None]
  - VOMITING [None]
